FAERS Safety Report 7403058-0 (Version None)
Quarter: 2011Q1

REPORT INFORMATION
  Report Type: 
  Country: None (occurrence: None)
  Receive Date: 20110331
  Receipt Date: 20110316
  Transmission Date: 20110831
  Serious: Yes (Other)
  Sender: FDA-Public Use
  Company Number: 2010S1000142

PATIENT
  Age: 72 Year
  Sex: Female
  Weight: 84.8226 kg

DRUGS (7)
  1. METOPROLOL [Concomitant]
  2. PRILOSEC [Concomitant]
  3. PHOSPHOSODA FLAVOR NOT SPECIFIED [Suspect]
     Indication: COLONOSCOPY
     Dosage: PO
     Route: 048
     Dates: start: 20080219
  4. LIPITOR [Concomitant]
  5. ASPIRIN [Concomitant]
  6. PERMARIN /00073001/ [Concomitant]
  7. AVAPRO [Concomitant]

REACTIONS (7)
  - HYPOTENSION [None]
  - FLUID INTAKE REDUCED [None]
  - DEHYDRATION [None]
  - RENAL FAILURE CHRONIC [None]
  - RENAL FAILURE ACUTE [None]
  - NEPHROGENIC ANAEMIA [None]
  - DECREASED APPETITE [None]
